FAERS Safety Report 8118878-7 (Version None)
Quarter: 2012Q1

REPORT INFORMATION
  Report Type: 
  Country: None (occurrence: None)
  Receive Date: 20120202
  Receipt Date: 20120125
  Transmission Date: 20120608
  Serious: Yes (Death)
  Sender: FDA-Public Use
  Company Number: 2012-0439

PATIENT
  Age: 74 Year
  Sex: Female

DRUGS (1)
  1. SOMATULINE DEPOT [Suspect]
     Indication: NEUROENDOCRINE TUMOUR
     Dosage: 120 MG (120 MG, NOT REPORTED),
     Dates: start: 20091201, end: 20111201

REACTIONS (2)
  - NEUROENDOCRINE TUMOUR [None]
  - CONDITION AGGRAVATED [None]
